FAERS Safety Report 22718361 (Version 2)
Quarter: 2023Q4

REPORT INFORMATION
  Report Type: Spontaneous
  Country: US (occurrence: US)
  Receive Date: 20230718
  Receipt Date: 20231011
  Transmission Date: 20240109
  Serious: No
  Sender: FDA-Public Use
  Company Number: US-SA-SAC20230714001080

PATIENT
  Age: 33 Year
  Sex: Male

DRUGS (1)
  1. DUPIXENT [Suspect]
     Active Substance: DUPILUMAB
     Indication: Eosinophilic oesophagitis
     Dosage: 300 MG, QW
     Route: 058
     Dates: start: 20230628

REACTIONS (3)
  - Dry skin [Unknown]
  - Dry mouth [Unknown]
  - Injection site swelling [Recovered/Resolved]

NARRATIVE: CASE EVENT DATE: 20230101
